FAERS Safety Report 15439302 (Version 1)
Quarter: 2018Q3

REPORT INFORMATION
  Report Type: Spontaneous
  Country: US (occurrence: US)
  Receive Date: 20180924
  Receipt Date: 20180924
  Transmission Date: 20181010
  Serious: No
  Sender: FDA-Public Use
  Company Number: None

PATIENT
  Age: 28 Year
  Sex: Female

DRUGS (1)
  1. EPCLUSA [Suspect]
     Active Substance: SOFOSBUVIR\VELPATASVIR
     Dates: start: 20180831

REACTIONS (5)
  - Pruritus [None]
  - Peripheral swelling [None]
  - Paraesthesia [None]
  - Burning sensation [None]
  - Headache [None]

NARRATIVE: CASE EVENT DATE: 20180831
